FAERS Safety Report 5948906-6 (Version None)
Quarter: 2008Q4

REPORT INFORMATION
  Report Type: 
  Country: None (occurrence: None)
  Receive Date: 20081111
  Receipt Date: 20081030
  Transmission Date: 20090506
  Serious: Yes (Other)
  Sender: FDA-Public Use
  Company Number: JP-ROCHE-594980

PATIENT
  Age: 43 Year
  Sex: Female

DRUGS (5)
  1. COPEGUS [Suspect]
     Indication: HEPATITIS C
     Route: 048
  2. PEG-INTRON [Suspect]
     Indication: HEPATITIS C
     Route: 058
  3. TACROLIMUS [Suspect]
     Indication: LIVER TRANSPLANT REJECTION
     Dosage: FORM: INTRAVENOUS (NOT OTHERWISE SPECIFIED)
     Route: 042
  4. ALPROSTADIL ALFADEX [Concomitant]
     Dosage: ROUTE: INJECTABLE (NOT OTHERWISE SPECIFIED)
  5. EDARAVONE [Concomitant]
     Dosage: ROUTE: INJECTABLE (NOT OTHERWISE SPECIFIED)

REACTIONS (1)
  - THROMBOTIC MICROANGIOPATHY [None]
